FAERS Safety Report 22695532 (Version 2)
Quarter: 2024Q2

REPORT INFORMATION
  Report Type: Spontaneous
  Country: CA (occurrence: CA)
  Receive Date: 20230712
  Receipt Date: 20240429
  Transmission Date: 20240715
  Serious: Yes (Hospitalization, Disabling, Other)
  Sender: FDA-Public Use
  Company Number: CA-BRISTOL-MYERS SQUIBB COMPANY-2023-097719

PATIENT
  Age: 44 Year
  Sex: Female

DRUGS (2)
  1. THALOMID [Suspect]
     Active Substance: THALIDOMIDE
     Indication: Systemic lupus erythematosus
     Dosage: DOSE : 50 MG;     FREQ : 20C/28D
     Route: 048
     Dates: start: 20140811
  2. THALOMID [Suspect]
     Active Substance: THALIDOMIDE
     Dosage: DOSE : 50 MG; FREQ : 16C/28D
     Route: 048
     Dates: start: 20140811

REACTIONS (7)
  - Mobility decreased [Unknown]
  - Infertility [Unknown]
  - Non-consummation [Unknown]
  - Off label use [Unknown]
  - Limb discomfort [Unknown]
  - Fall [Unknown]
  - Foot fracture [Unknown]
